FAERS Safety Report 5445750-3 (Version None)
Quarter: 2007Q3

REPORT INFORMATION
  Report Type: 
  Country: None (occurrence: None)
  Receive Date: 20070904
  Receipt Date: 20070822
  Transmission Date: 20080115
  Serious: Yes (Hospitalization)
  Sender: FDA-Public Use
  Company Number: 2007BI016333

PATIENT
  Sex: Female
  Weight: 1.67 kg

DRUGS (1)
  1. AVONEX [Suspect]
     Indication: MATERNAL CONDITION AFFECTING FOETUS
     Dosage: 30 UG; QW; IM
     Route: 064
     Dates: start: 20030801

REACTIONS (4)
  - DRUG EXPOSURE DURING PREGNANCY [None]
  - MATERNAL CONDITION AFFECTING FOETUS [None]
  - PREMATURE BABY [None]
  - SMALL FOR DATES BABY [None]
